FAERS Safety Report 17099188 (Version 1)
Quarter: 2019Q4

REPORT INFORMATION
  Report Type: Spontaneous
  Country: US (occurrence: US)
  Receive Date: 20191201
  Receipt Date: 20191201
  Transmission Date: 20200122
  Serious: Yes (Other)
  Sender: FDA-Public Use
  Company Number: None

PATIENT
  Age: 59 Year
  Sex: Male
  Weight: 67.5 kg

DRUGS (1)
  1. METHOCARBAMOL. [Suspect]
     Active Substance: METHOCARBAMOL
     Indication: BACK PAIN
     Dosage: ?          QUANTITY:1 TABLET(S);?
     Route: 048

REACTIONS (3)
  - Product colour issue [None]
  - Pain [None]
  - Dyspepsia [None]

NARRATIVE: CASE EVENT DATE: 20190801
